FAERS Safety Report 9192864 (Version 1)
Quarter: 2013Q1

REPORT INFORMATION
  Report Type: Spontaneous
  Country: US (occurrence: None)
  Receive Date: 20120703
  Receipt Date: 20120703
  Transmission Date: 20140127
  Serious: No
  Sender: FDA-Public Use
  Company Number: PHEH2012US007781

PATIENT
  Sex: Male
  Weight: 104.3 kg

DRUGS (1)
  1. GILENYA (FTY) CAPSULE, 0.5MG [Suspect]
     Indication: MULTIPLE SCLEROSIS
     Route: 048
     Dates: start: 20120312, end: 201204

REACTIONS (5)
  - Vertigo [None]
  - Hypotension [None]
  - Nausea [None]
  - Dizziness [None]
  - Dyspnoea [None]
